FAERS Safety Report 7527711-3 (Version None)
Quarter: 2011Q2

REPORT INFORMATION
  Report Type: 
  Country: None (occurrence: None)
  Receive Date: 20110607
  Receipt Date: 20110601
  Transmission Date: 20111010
  Serious: Yes (Hospitalization, Other)
  Sender: FDA-Public Use
  Company Number: PHHY2010US84282

PATIENT
  Age: 6 Year
  Sex: Male

DRUGS (3)
  1. PULMOZYME [Concomitant]
     Dosage: 2.5 MG, QD
  2. TOBI [Suspect]
     Dates: start: 20110324
  3. TOBI [Suspect]
     Indication: CYSTIC FIBROSIS
     Dosage: 300 MG 1 AMP BID VIA NEB 28 DAYS ON, 28 DAYS OFF
     Dates: start: 20080619

REACTIONS (4)
  - LUNG INFECTION [None]
  - CONDITION AGGRAVATED [None]
  - CYSTIC FIBROSIS [None]
  - UPPER RESPIRATORY TRACT INFECTION [None]
